FAERS Safety Report 9816679 (Version 1)
Quarter: 2014Q1

REPORT INFORMATION
  Report Type: Report from Study
  Country: NL (occurrence: NL)
  Receive Date: 20140114
  Receipt Date: 20140114
  Transmission Date: 20141002
  Serious: Yes (Hospitalization, Other)
  Sender: FDA-Public Use
  Company Number: NL-ABBVIE-13P-114-1184017-00

PATIENT
  Sex: Female

DRUGS (1)
  1. LUCRIN [Suspect]
     Indication: OVARIAN CANCER
     Route: 058
     Dates: start: 20111216, end: 201303

REACTIONS (1)
  - Ovarian cancer [Unknown]
